FAERS Safety Report 18180796 (Version 1)
Quarter: 2020Q3

REPORT INFORMATION
  Report Type: Spontaneous
  Country: US (occurrence: US)
  Receive Date: 20200820
  Receipt Date: 20200820
  Transmission Date: 20201103
  Serious: Yes (Hospitalization)
  Sender: FDA-Public Use
  Company Number: None

PATIENT
  Age: 48 Year
  Sex: Female

DRUGS (9)
  1. CEFADROXIL. [Suspect]
     Active Substance: CEFADROXIL
  2. DROSPIRENONE ETHY EST [Concomitant]
  3. ENBREL [Suspect]
     Active Substance: ETANERCEPT
     Indication: PSORIATIC ARTHROPATHY
     Route: 058
     Dates: start: 20200629
  4. OXYCODONE AND ACETAMINOPHEN [Suspect]
     Active Substance: ACETAMINOPHEN\OXYCODONE HYDROCHLORIDE
  5. IBUPROFEN. [Suspect]
     Active Substance: IBUPROFEN
  6. ALPRAZOLAM. [Suspect]
     Active Substance: ALPRAZOLAM
  7. ONDANSETRON [Suspect]
     Active Substance: ONDANSETRON
  8. ENOXAPARIN [Suspect]
     Active Substance: ENOXAPARIN
  9. CLONIDINE. [Suspect]
     Active Substance: CLONIDINE

REACTIONS (2)
  - Muscle operation [None]
  - Abdominoplasty [None]

NARRATIVE: CASE EVENT DATE: 20200818
